FAERS Safety Report 5277663-4 (Version None)
Quarter: 2007Q1

REPORT INFORMATION
  Report Type: 
  Country: None (occurrence: None)
  Receive Date: 20070320
  Receipt Date: 20070309
  Transmission Date: 20070707
  Serious: Yes (Hospitalization)
  Sender: FDA-Public Use
  Company Number: WAES 0703USA01956

PATIENT
  Age: 60 Year
  Sex: Female

DRUGS (6)
  1. COZAAR [Suspect]
  2. METFORMIN UNK [Suspect]
  3. AGGRENOX [Concomitant]
  4. MICARDIS [Concomitant]
  5. CLOPIDOGREL BISULFATE [Concomitant]
  6. PLACEBO (UNSPECIFIED) [Concomitant]

REACTIONS (4)
  - BLOOD PRESSURE DECREASED [None]
  - CAMPYLOBACTER INTESTINAL INFECTION [None]
  - DEHYDRATION [None]
  - RENAL FAILURE ACUTE [None]
